FAERS Safety Report 6664454-2 (Version None)
Quarter: 2010Q2

REPORT INFORMATION
  Report Type: 
  Country: None (occurrence: None)
  Receive Date: 20100401
  Receipt Date: 20100331
  Transmission Date: 20101027
  Serious: Yes (Death, Other)
  Sender: FDA-Public Use
  Company Number: PHEH2005US10721

PATIENT
  Sex: Female

DRUGS (28)
  1. AREDIA [Suspect]
     Indication: MULTIPLE MYELOMA
     Dosage: 90 MG, UNK
     Route: 042
     Dates: start: 20010105, end: 20030908
  2. DECADRON [Suspect]
     Indication: MULTIPLE MYELOMA
     Dates: start: 20021121, end: 20030814
  3. PREDNISONE TAB [Concomitant]
  4. PEPCID [Concomitant]
  5. FAMVIR /UNK/ [Concomitant]
     Dosage: 500 MG, Q8H
     Route: 048
  6. MELPHALAN HYDROCHLORIDE [Concomitant]
     Indication: MULTIPLE MYELOMA
  7. XANAX [Concomitant]
     Indication: INSOMNIA
     Dosage: 0.5 MG, QHS
     Route: 048
     Dates: start: 20010326
  8. PAXIL [Concomitant]
     Indication: DEPRESSION
     Dosage: 10 MG, DAILY
  9. BACTRIM [Concomitant]
     Dosage: 2 DAYS PER WEEK
     Dates: start: 20030228
  10. BEXTRA [Concomitant]
     Dosage: 20 MG, QD
     Dates: start: 20030228
  11. THALIDOMIDE [Concomitant]
     Indication: MULTIPLE MYELOMA
  12. CYMBALTA [Concomitant]
  13. MEPERGAN FORTIS [Concomitant]
  14. KLONOPIN [Concomitant]
  15. ELAVIL [Concomitant]
     Dosage: UNK
  16. EFFEXOR [Concomitant]
     Dosage: UNK
  17. AMITRIPTYLINE HYDROCHLORIDE [Concomitant]
     Dosage: UNK
  18. ERTAPENEM [Concomitant]
     Dosage: INTRAVENOUS
     Dates: start: 20030101, end: 20030101
  19. METHADONE [Concomitant]
     Dosage: 10 MG, BID
     Route: 048
  20. FLURAZEPAM [Concomitant]
     Dosage: 15 MG, QHS
     Route: 048
  21. GLYBURIDE [Concomitant]
     Dosage: 5 MG, QD
     Route: 048
  22. CLINORIL [Concomitant]
     Dosage: 150 MG, BID
     Route: 048
  23. DILAUDID [Concomitant]
  24. LACTULOSE [Concomitant]
  25. COLACE [Concomitant]
  26. COUMADIN [Concomitant]
  27. KETOCONAZOLE [Concomitant]
  28. MAGNESIUM OXIDE [Concomitant]

REACTIONS (69)
  - ACTINOMYCOSIS [None]
  - ALOPECIA [None]
  - ALVEOLOPLASTY [None]
  - ASTHENIA [None]
  - ATELECTASIS [None]
  - BACK PAIN [None]
  - BLOOD GLUCOSE INCREASED [None]
  - BLOOD LACTATE DEHYDROGENASE INCREASED [None]
  - BLOODY DISCHARGE [None]
  - BONE DEBRIDEMENT [None]
  - BONE DISORDER [None]
  - BONE LESION [None]
  - CATARACT [None]
  - CHEST PAIN [None]
  - CLOSTRIDIAL INFECTION [None]
  - CONFUSIONAL STATE [None]
  - COUGH [None]
  - DEATH [None]
  - DECREASED APPETITE [None]
  - DEMENTIA [None]
  - DENTAL CARIES [None]
  - DIZZINESS [None]
  - DYSPHAGIA [None]
  - EATING DISORDER [None]
  - ENDOCARDITIS [None]
  - ERYTHEMA [None]
  - EYE SWELLING [None]
  - FATIGUE [None]
  - FIBROSIS [None]
  - HAEMATOCRIT DECREASED [None]
  - HAEMOGLOBIN DECREASED [None]
  - HEADACHE [None]
  - HERPES ZOSTER [None]
  - HYPOAESTHESIA [None]
  - HYPONATRAEMIA [None]
  - INFLAMMATION [None]
  - JAW OPERATION [None]
  - KLEBSIELLA INFECTION [None]
  - LEUKOPENIA [None]
  - MALAISE [None]
  - MALIGNANT NEOPLASM PROGRESSION [None]
  - MEAN CELL HAEMOGLOBIN [None]
  - MEAN CELL VOLUME INCREASED [None]
  - MOUTH ULCERATION [None]
  - NEURITIS [None]
  - NORMOCHROMIC NORMOCYTIC ANAEMIA [None]
  - OEDEMA PERIPHERAL [None]
  - ORAL PAIN [None]
  - OSTEITIS [None]
  - OSTEOMYELITIS [None]
  - OSTEONECROSIS [None]
  - OSTEOSCLEROSIS [None]
  - PAIN [None]
  - POST HERPETIC NEURALGIA [None]
  - PURULENT DISCHARGE [None]
  - RASH [None]
  - RED BLOOD CELL COUNT DECREASED [None]
  - RED CELL DISTRIBUTION WIDTH INCREASED [None]
  - RIB FRACTURE [None]
  - SEQUESTRECTOMY [None]
  - STOMATITIS [None]
  - SWELLING FACE [None]
  - SYNCOPE [None]
  - TOOTH EXTRACTION [None]
  - TOOTH FRACTURE [None]
  - ULCERATIVE KERATITIS [None]
  - URINARY RETENTION [None]
  - VISION BLURRED [None]
  - WEIGHT DECREASED [None]
